FAERS Safety Report 12799941 (Version 1)
Quarter: 2016Q3

REPORT INFORMATION
  Report Type: Spontaneous
  Country: IN (occurrence: IN)
  Receive Date: 20160930
  Receipt Date: 20160930
  Transmission Date: 20161109
  Serious: Yes (Other)
  Sender: FDA-Public Use
  Company Number: IN-FRESENIUS KABI-FK201607259

PATIENT
  Age: 24 Year
  Sex: Female

DRUGS (2)
  1. CALCIUM AND VITAMIN D [Concomitant]
     Active Substance: CALCIUM\VITAMIN D
     Indication: FIBROUS DYSPLASIA OF BONE
     Route: 065
  2. PAMIDRONATE [Suspect]
     Active Substance: PAMIDRONATE DISODIUM
     Indication: FIBROUS DYSPLASIA OF BONE
     Route: 042

REACTIONS (1)
  - Tibia fracture [Unknown]
